FAERS Safety Report 25914515 (Version 2)
Quarter: 2025Q4

REPORT INFORMATION
  Report Type: Report from Study
  Country: EU (occurrence: EU)
  Receive Date: 20251013
  Receipt Date: 20251025
  Transmission Date: 20260118
  Serious: Yes (Hospitalization)
  Sender: ABBVIE
  Company Number: EU-ABBVIE-6442286

PATIENT
  Age: 78 Year
  Sex: Female
  Weight: 50.2 kg

DRUGS (14)
  1. FOSCARBIDOPA\FOSLEVODOPA [Suspect]
     Active Substance: FOSCARBIDOPA\FOSLEVODOPA
     Indication: Parkinson^s disease
     Dosage: BASE RATE: 0.24 ML/H, HIGH RATE: 0.27 ML/H, LOW RATE: 0.15 ML/H, EXTRA DOS: 0.10 ML/H. LAST ADMIN...
     Route: 058
     Dates: start: 20250506
  2. FOSCARBIDOPA\FOSLEVODOPA [Suspect]
     Active Substance: FOSCARBIDOPA\FOSLEVODOPA
     Dosage: CRN: 0.15ML/H; CR: 0.24ML/H; CRH: 0.27ML/H; ED: 0.10ML
     Route: 058
     Dates: start: 2025
  3. RAMIPRIL [Concomitant]
     Active Substance: RAMIPRIL
     Indication: Product used for unknown indication
     Dosage: 5MG/12.5MG, 1X1 PIECE
     Dates: start: 20210407
  4. CHOLECALCIFEROL [Concomitant]
     Active Substance: CHOLECALCIFEROL
     Indication: Product used for unknown indication
     Dosage: 1X1 PIECE
     Dates: start: 20191218
  5. PANTOPRAZOLE [Concomitant]
     Active Substance: PANTOPRAZOLE
     Indication: Product used for unknown indication
     Dates: start: 20191218
  6. ALENDRONATE SODIUM [Concomitant]
     Active Substance: ALENDRONATE SODIUM
     Indication: Product used for unknown indication
     Dosage: 70 MG 4 TABLETS, 1X1 PIECE
     Dates: start: 20250520
  7. VITAMIN B6 [Concomitant]
     Active Substance: PYRIDOXINE HYDROCHLORIDE
     Indication: Product used for unknown indication
     Dosage: 1X1 PIECE
     Dates: start: 20250520
  8. VITAMIN B12 [Concomitant]
     Active Substance: CYANOCOBALAMIN
     Indication: Product used for unknown indication
     Dosage: 1X1 PIECE
     Dates: start: 20250521
  9. Dexagenta [Concomitant]
     Indication: Product used for unknown indication
     Dosage: 1X1 PIECE DAILY
  10. GENTAMICIN SULFATE [Concomitant]
     Active Substance: GENTAMICIN SULFATE
     Indication: Product used for unknown indication
     Dosage: 1X1 PIECE
     Dates: start: 20250910
  11. FOLIC ACID [Concomitant]
     Active Substance: FOLIC ACID
     Indication: Product used for unknown indication
     Dosage: 1X1 PIECE
     Dates: start: 20191218
  12. RIVASTIGMINE [Concomitant]
     Active Substance: RIVASTIGMINE
     Indication: Product used for unknown indication
     Dosage: 1X1 PIECE
     Dates: start: 20220612
  13. RAMIPRIL [Concomitant]
     Active Substance: RAMIPRIL
     Indication: Product used for unknown indication
     Dosage: 1X1 PIECE
     Dates: start: 20210407
  14. SERTRALINE HYDROCHLORIDE [Concomitant]
     Active Substance: SERTRALINE HYDROCHLORIDE
     Indication: Product used for unknown indication
     Dosage: 1X0.5 PIECE
     Dates: start: 20230111

REACTIONS (4)
  - Muscle spasms [Recovered/Resolved]
  - Hyperkinesia [Not Recovered/Not Resolved]
  - Weight decreased [Unknown]
  - Hypophagia [Unknown]

NARRATIVE: CASE EVENT DATE: 20250101
